FAERS Safety Report 16193161 (Version 1)
Quarter: 2019Q2

REPORT INFORMATION
  Report Type: Spontaneous
  Country: CN (occurrence: CN)
  Receive Date: 20190413
  Receipt Date: 20190413
  Transmission Date: 20190711
  Serious: Yes (Other)
  Sender: FDA-Public Use
  Company Number: CN-ROCHE-2296288

PATIENT
  Age: 53 Year
  Sex: Female

DRUGS (11)
  1. HERCEPTIN [Suspect]
     Active Substance: TRASTUZUMAB
     Indication: METASTASES TO CHEST WALL
     Dosage: 244MG, DAY1
     Route: 065
     Dates: start: 20051221
  2. DOCETAXEL. [Suspect]
     Active Substance: DOCETAXEL
     Indication: INVASIVE DUCTAL BREAST CARCINOMA
     Dosage: 120MG, DAY2
     Route: 065
     Dates: start: 20051108
  3. DOCETAXEL. [Suspect]
     Active Substance: DOCETAXEL
     Indication: METASTASES TO CHEST WALL
  4. LETROZOLE. [Concomitant]
     Active Substance: LETROZOLE
     Route: 048
     Dates: start: 200606, end: 201406
  5. HERCEPTIN [Suspect]
     Active Substance: TRASTUZUMAB
     Indication: INVASIVE DUCTAL BREAST CARCINOMA
     Dosage: 244MG, DAY1
     Route: 065
     Dates: start: 20051108
  6. DOCETAXEL. [Suspect]
     Active Substance: DOCETAXEL
     Indication: METASTASES TO LUNG
     Dosage: 120MG, DAY2
     Route: 065
     Dates: start: 20051221
  7. GOSERELIN [Suspect]
     Active Substance: GOSERELIN
     Indication: PRODUCT USED FOR UNKNOWN INDICATION
     Dosage: ENDOCRINOTHERAPY
     Route: 058
     Dates: start: 200606, end: 20170510
  8. AFINITOR [Concomitant]
     Active Substance: EVEROLIMUS
     Route: 048
  9. HERCEPTIN [Suspect]
     Active Substance: TRASTUZUMAB
     Indication: METASTASES TO LUNG
     Dosage: 122MG, DAY8
     Route: 065
     Dates: start: 20051108
  10. HERCEPTIN [Suspect]
     Active Substance: TRASTUZUMAB
     Dosage: 122MG, DAY8
     Route: 065
     Dates: start: 20051221
  11. HERCEPTIN [Suspect]
     Active Substance: TRASTUZUMAB
     Route: 065
     Dates: start: 200604, end: 201212

REACTIONS (8)
  - Cardiotoxicity [Unknown]
  - Chest wall tumour [Unknown]
  - Face oedema [Unknown]
  - Mouth ulceration [Unknown]
  - Bone marrow failure [Unknown]
  - Alopecia [Unknown]
  - Rash [Unknown]
  - Taste disorder [Unknown]
